FAERS Safety Report 5566657-7 (Version None)
Quarter: 2007Q4

REPORT INFORMATION
  Report Type: 
  Country: None (occurrence: None)
  Receive Date: 20071219
  Receipt Date: 20071210
  Transmission Date: 20080405
  Serious: Yes (Other)
  Sender: FDA-Public Use
  Company Number: BR-ROCHE-496258

PATIENT
  Sex: Female
  Weight: 2.2 kg

DRUGS (2)
  1. ROACUTAN [Suspect]
     Indication: ACNE
     Dates: start: 20061101, end: 20061101
  2. ROACUTAN [Suspect]
     Dates: start: 20051101, end: 20060601

REACTIONS (3)
  - DRUG EXPOSURE DURING PREGNANCY [None]
  - NO ADVERSE EVENT [None]
  - NORMAL NEWBORN [None]
